FAERS Safety Report 24600157 (Version 2)
Quarter: 2024Q4

REPORT INFORMATION
  Report Type: Spontaneous
  Country: US (occurrence: US)
  Receive Date: 20241110
  Receipt Date: 20241115
  Transmission Date: 20250114
  Serious: No
  Sender: SANOFI AVENTIS
  Company Number: US-SANOFI-02284092

PATIENT
  Age: 77 Year
  Sex: Female

DRUGS (2)
  1. TOUJEO [Suspect]
     Active Substance: INSULIN GLARGINE
     Indication: Type 2 diabetes mellitus
     Dosage: 12 IU, QD
     Route: 065
     Dates: start: 2022
  2. TOUJEO [Suspect]
     Active Substance: INSULIN GLARGINE
     Dosage: 8 AND 12 UNITS ONCE A DAY
     Route: 065
     Dates: start: 2024

REACTIONS (2)
  - Blood glucose increased [Not Recovered/Not Resolved]
  - Device mechanical issue [Unknown]

NARRATIVE: CASE EVENT DATE: 20240101
